FAERS Safety Report 23601156 (Version 1)
Quarter: 2024Q1

REPORT INFORMATION
  Report Type: Spontaneous
  Country: CN (occurrence: CN)
  Receive Date: 20240306
  Receipt Date: 20240306
  Transmission Date: 20240410
  Serious: Yes (Other)
  Sender: FDA-Public Use
  Company Number: None

PATIENT
  Age: 69 Year
  Sex: Female
  Weight: 45 kg

DRUGS (4)
  1. CYCLOPHOSPHAMIDE [Suspect]
     Active Substance: CYCLOPHOSPHAMIDE
     Indication: Breast cancer female
     Dosage: 0.80 G, ONE TIME IN ONE DAY, D1, FOURTH CYCLE OF CHEMOTHERAPY
     Route: 041
     Dates: start: 20240206, end: 20240206
  2. CYCLOPHOSPHAMIDE [Suspect]
     Active Substance: CYCLOPHOSPHAMIDE
     Indication: Breast cancer stage III
  3. EPIRUBICIN HYDROCHLORIDE [Suspect]
     Active Substance: EPIRUBICIN HYDROCHLORIDE
     Indication: Breast cancer female
     Dosage: 60 MG, ONE TIME IN ONE DAY, D1, FOURTH CYCLE OF CHEMOTHERAPY
     Route: 041
     Dates: start: 20240206, end: 20240206
  4. EPIRUBICIN HYDROCHLORIDE [Suspect]
     Active Substance: EPIRUBICIN HYDROCHLORIDE
     Indication: Breast cancer stage III
     Dosage: 70 MG, ONE TIME IN ONE DAY, D2, FOURTH CYCLE OF CHEMOTHERAPY
     Route: 041
     Dates: start: 20240207, end: 20240207

REACTIONS (2)
  - Breast cancer [Unknown]
  - White blood cell count decreased [Recovered/Resolved]

NARRATIVE: CASE EVENT DATE: 20240208
